FAERS Safety Report 9516181 (Version 1)
Quarter: 2013Q1

REPORT INFORMATION
  Report Type: Spontaneous
  Country: US (occurrence: None)
  Receive Date: 20130305
  Receipt Date: 20130305
  Transmission Date: 20140127
  Serious: Yes (Other)
  Sender: FDA-Public Use
  Company Number: 163-21880-12114114

PATIENT
  Age: 87 Year
  Sex: Female
  Weight: 63.96 kg

DRUGS (4)
  1. REVLIMID (LENALIDOMIDE) (CAPSULES) [Suspect]
     Indication: MYELODYSPLASTIC SYNDROME
     Dosage: 5 MG, 1 IN 2 D, PO
     Route: 048
     Dates: start: 20090812
  2. PRADAXA (DABIGATRAN ETEXILATE MESILATE) [Concomitant]
  3. FOLIC ACID (FOLIC ACID) [Concomitant]
  4. ALLOPURINOL [Concomitant]

REACTIONS (1)
  - Diarrhoea [None]
